FAERS Safety Report 6202793-X (Version None)
Quarter: 2009Q2

REPORT INFORMATION
  Report Type: 
  Country: None (occurrence: None)
  Receive Date: 20090526
  Receipt Date: 20090515
  Transmission Date: 20091009
  Serious: Yes (Death)
  Sender: FDA-Public Use
  Company Number: CO-PFIZER INC-2008048045

PATIENT
  Sex: Female
  Weight: 40.3 kg

DRUGS (5)
  1. IRINOTECAN HCL [Suspect]
     Indication: COLORECTAL CANCER METASTATIC
     Dosage: 248 MG, EVERY 2 WEEKS
     Route: 042
     Dates: start: 20080508, end: 20080523
  2. BLINDED *PLACEBO [Suspect]
     Indication: COLORECTAL CANCER METASTATIC
     Dosage: 37.5 MG, 1X/DAY
     Route: 048
     Dates: start: 20080508, end: 20080501
  3. BLINDED SUNITINIB MALATE [Suspect]
     Indication: COLORECTAL CANCER METASTATIC
     Dosage: 37.5 MG, 1X/DAY
     Route: 048
     Dates: start: 20080508, end: 20080501
  4. LEUCOVORIN CALCIUM [Suspect]
     Indication: COLORECTAL CANCER METASTATIC
     Dosage: 276 MG, EVERY 2 WEEKS
     Route: 042
     Dates: start: 20080508, end: 20080523
  5. FLUOROURACIL [Suspect]
     Indication: COLORECTAL CANCER METASTATIC
     Dosage: 3862 MG, EVERY 2 WEEKS
     Route: 042
     Dates: start: 20080508, end: 20080525

REACTIONS (2)
  - COLORECTAL CANCER METASTATIC [None]
  - DISEASE PROGRESSION [None]
